FAERS Safety Report 17628234 (Version 1)
Quarter: 2020Q2

REPORT INFORMATION
  Report Type: Report from Study
  Country: US (occurrence: US)
  Receive Date: 20200406
  Receipt Date: 20200406
  Transmission Date: 20200713
  Serious: Yes (Hospitalization)
  Sender: FDA-Public Use
  Company Number: US-BRISTOL-MYERS SQUIBB COMPANY-BMS-2020-027356

PATIENT
  Age: 79 Year
  Sex: Male
  Weight: 92.7 kg

DRUGS (3)
  1. CABOZANTINIB [Suspect]
     Active Substance: CABOZANTINIB
     Indication: GENITOURINARY MELANOMA
     Dosage: 40 MILLIGRAM, QD
     Route: 048
     Dates: start: 20200102, end: 20200308
  2. IPILIMUMAB [Suspect]
     Active Substance: IPILIMUMAB
     Indication: GENITOURINARY MELANOMA
     Dosage: 1 MILLIGRAM/KILOGRAM
     Route: 042
     Dates: start: 20200102, end: 20200305
  3. NIVOLUMAB [Suspect]
     Active Substance: NIVOLUMAB
     Indication: GENITOURINARY MELANOMA
     Dosage: 3 MILLIGRAM/KILOGRAM
     Route: 042
     Dates: start: 20200102, end: 20200305

REACTIONS (1)
  - Arthralgia [Recovered/Resolved]

NARRATIVE: CASE EVENT DATE: 20200308
